FAERS Safety Report 15715409 (Version 2)
Quarter: 2018Q4

REPORT INFORMATION
  Report Type: Spontaneous
  Country: IE (occurrence: IE)
  Receive Date: 20181212
  Receipt Date: 20181226
  Transmission Date: 20190205
  Serious: Yes (Hospitalization, Disabling, Other)
  Sender: FDA-Public Use
  Company Number: IE-PFIZER INC-2018507496

PATIENT
  Age: 6 Year
  Sex: Female
  Weight: 26 kg

DRUGS (3)
  1. IBUPROFEN. [Suspect]
     Active Substance: IBUPROFEN
     Indication: PYREXIA
     Dosage: 5 ML, 3X/DAY(EVERY 8 HOURS)
     Route: 048
     Dates: start: 20181030, end: 20181108
  2. BECOTIDE [Concomitant]
     Active Substance: BECLOMETHASONE DIPROPIONATE
     Indication: ASTHMA
     Dosage: 2 PUFFS TWICE DAILY
     Dates: start: 20180901
  3. DIFENE [Suspect]
     Active Substance: DICLOFENAC SODIUM
     Indication: ANALGESIC THERAPY
     Dosage: 250 MG, 2X/DAY(EVERY 12 HOURS)
     Route: 054
     Dates: start: 20181101, end: 20181106

REACTIONS (6)
  - Pain in jaw [Recovered/Resolved]
  - Neck pain [Recovered/Resolved]
  - Lymphadenopathy [Recovered/Resolved]
  - Pharyngeal oedema [Recovered/Resolved]
  - Swelling face [Recovered/Resolved]
  - Pyrexia [Recovered/Resolved]

NARRATIVE: CASE EVENT DATE: 20181101
